FAERS Safety Report 4970635-6 (Version None)
Quarter: 2006Q1

REPORT INFORMATION
  Report Type: 
  Country: None (occurrence: None)
  Receive Date: 20060208
  Receipt Date: 20050223
  Transmission Date: 20060701
  Serious: Yes (Hospitalization)
  Sender: FDA-Public Use
  Company Number: PHEH2005US02404

PATIENT
  Age: 1 Year
  Sex: Male

DRUGS (1)
  1. ELIDEL [Suspect]
     Indication: ECZEMA
     Dosage: TOPICAL
     Route: 061
     Dates: start: 20040101, end: 20040101

REACTIONS (9)
  - ASTHMA [None]
  - BRONCHITIS [None]
  - FUNGAL INFECTION [None]
  - FURUNCLE [None]
  - LOCAL SWELLING [None]
  - LYMPHADENOPATHY [None]
  - NASOPHARYNGITIS [None]
  - PYREXIA [None]
  - STAPHYLOCOCCAL INFECTION [None]
